FAERS Safety Report 9477445 (Version 1)
Quarter: 2013Q3

REPORT INFORMATION
  Report Type: Report from Study
  Country: VE (occurrence: VE)
  Receive Date: 20130826
  Receipt Date: 20130826
  Transmission Date: 20140515
  Serious: Yes (Hospitalization)
  Sender: FDA-Public Use
  Company Number: PHHY2013VE091624

PATIENT
  Sex: Female

DRUGS (6)
  1. EXJADE [Suspect]
     Indication: IRON OVERLOAD
     Dosage: 500 MG, DAILY
     Route: 048
     Dates: start: 2010, end: 2010
  2. EXJADE [Suspect]
     Dosage: 500 MG, DAILY
     Route: 048
     Dates: start: 2011, end: 2011
  3. EXJADE [Suspect]
     Dosage: 500 MG, DAILY
     Route: 048
     Dates: start: 201301, end: 201301
  4. EXJADE [Suspect]
     Dosage: 500 MG, DAILY
     Route: 048
     Dates: start: 20130618
  5. FOLIC ACID [Concomitant]
     Dosage: 05 MG, DAILY
     Route: 048
     Dates: start: 1997
  6. ERYTHROPOIETIN [Concomitant]
     Dosage: UNK UKN, UNK
     Route: 042
     Dates: start: 2010

REACTIONS (4)
  - Epistaxis [Recovered/Resolved]
  - Pain in extremity [Recovered/Resolved]
  - Splenic infarction [Recovered/Resolved]
  - Splenomegaly [Not Recovered/Not Resolved]
